FAERS Safety Report 11300318 (Version 1)
Quarter: 2015Q3

REPORT INFORMATION
  Report Type: Spontaneous
  Country: US (occurrence: US)
  Receive Date: 20150722
  Receipt Date: 20150722
  Transmission Date: 20151125
  Serious: No
  Sender: FDA-Public Use
  Company Number: US-ELI_LILLY_AND_COMPANY-US201309003440

PATIENT
  Age: 64 Year
  Sex: Male

DRUGS (3)
  1. ASPIRIN. [Concomitant]
     Active Substance: ASPIRIN
  2. EFFIENT [Suspect]
     Active Substance: PRASUGREL HYDROCHLORIDE
     Indication: STENT PLACEMENT
     Dosage: 10 MG, UNK
     Dates: start: 20130703
  3. INSULIN [Concomitant]
     Active Substance: INSULIN NOS

REACTIONS (2)
  - Fatigue [Unknown]
  - Musculoskeletal discomfort [Unknown]
